FAERS Safety Report 20842400 (Version 3)
Quarter: 2023Q1

REPORT INFORMATION
  Report Type: Spontaneous
  Country: US (occurrence: US)
  Receive Date: 20220518
  Receipt Date: 20230310
  Transmission Date: 20230417
  Serious: Yes (Other)
  Sender: FDA-Public Use
  Company Number: US-BRISTOL-MYERS SQUIBB COMPANY-2022-021798

PATIENT
  Age: 60 Year
  Sex: Female

DRUGS (2)
  1. POMALYST [Suspect]
     Active Substance: POMALIDOMIDE
     Indication: Plasma cell myeloma
     Dosage: APR-2022
     Route: 048
     Dates: start: 202203
  2. POMALYST [Suspect]
     Active Substance: POMALIDOMIDE
     Dosage: FREQUENCY: DAILY
     Route: 048

REACTIONS (9)
  - Dyspepsia [Unknown]
  - Pyrexia [Unknown]
  - Chills [Unknown]
  - Product dose omission issue [Unknown]
  - Malaise [Unknown]
  - Tremor [Unknown]
  - Bone pain [Unknown]
  - Muscular weakness [Unknown]
  - Thrombosis [Unknown]

NARRATIVE: CASE EVENT DATE: 20220101
